FAERS Safety Report 10191583 (Version 2)
Quarter: 2014Q2

REPORT INFORMATION
  Report Type: Spontaneous
  Country: IL (occurrence: IL)
  Receive Date: 20140523
  Receipt Date: 20140523
  Transmission Date: 20141212
  Serious: Yes (Hospitalization, Disabling, Other)
  Sender: FDA-Public Use
  Company Number: IL-JNJFOC-20140502326

PATIENT
  Sex: Male

DRUGS (1)
  1. TOPAMAX [Suspect]
     Indication: OBESITY
     Route: 048

REACTIONS (6)
  - Glaucoma [Unknown]
  - Eye infection [Unknown]
  - Visual impairment [Unknown]
  - Glare [Unknown]
  - Night blindness [Unknown]
  - Off label use [Unknown]
